FAERS Safety Report 22942772 (Version 2)
Quarter: 2023Q4

REPORT INFORMATION
  Report Type: Spontaneous
  Country: US (occurrence: US)
  Receive Date: 20230914
  Receipt Date: 20231017
  Transmission Date: 20240110
  Serious: No
  Sender: FDA-Public Use
  Company Number: US-BEH-2023162978

PATIENT
  Age: 3 Year
  Sex: Male

DRUGS (6)
  1. IDELVION [Suspect]
     Active Substance: COAGULATION FACTOR IX RECOMBINANT HUMAN
     Indication: Factor IX deficiency
     Dosage: 1000 INTERNATIONAL UNIT, QW
     Route: 042
     Dates: start: 202106
  2. IDELVION [Suspect]
     Active Substance: COAGULATION FACTOR IX RECOMBINANT HUMAN
     Indication: Factor IX deficiency
     Dosage: 1000 INTERNATIONAL UNIT, QW
     Route: 042
     Dates: start: 202106
  3. IDELVION [Suspect]
     Active Substance: COAGULATION FACTOR IX RECOMBINANT HUMAN
     Indication: Factor VIII deficiency
     Dosage: 1000 INTERNATIONAL UNIT, QW
     Route: 042
     Dates: start: 202303
  4. IDELVION [Suspect]
     Active Substance: COAGULATION FACTOR IX RECOMBINANT HUMAN
     Indication: Factor VIII deficiency
     Dosage: 1000 INTERNATIONAL UNIT, QW
     Route: 042
     Dates: start: 202303
  5. IDELVION [Suspect]
     Active Substance: COAGULATION FACTOR IX RECOMBINANT HUMAN
     Dosage: 250 INTERNATIONAL UNIT, QW
     Route: 042
     Dates: start: 202303
  6. IDELVION [Suspect]
     Active Substance: COAGULATION FACTOR IX RECOMBINANT HUMAN
     Dosage: 250 INTERNATIONAL UNIT, QW
     Route: 042
     Dates: start: 202303

REACTIONS (6)
  - Traumatic haemorrhage [Recovered/Resolved]
  - No adverse event [Unknown]
  - Off label use [Unknown]
  - Fall [Unknown]
  - Joint injury [Unknown]
  - Traumatic haemorrhage [Recovered/Resolved]

NARRATIVE: CASE EVENT DATE: 20230822
